FAERS Safety Report 23586784 (Version 1)
Quarter: 2024Q1

REPORT INFORMATION
  Report Type: Report from Study
  Country: US (occurrence: US)
  Receive Date: 20240301
  Receipt Date: 20240301
  Transmission Date: 20240409
  Serious: No
  Sender: FDA-Public Use
  Company Number: US-BIOVITRUM-2024-US-001830

PATIENT
  Age: 24 Month
  Sex: Male

DRUGS (2)
  1. SYNAGIS [Suspect]
     Active Substance: PALIVIZUMAB
     Indication: Bronchopulmonary dysplasia
     Dosage: INJECT 15MG/KG INTRAMUSCULARLY ONE TIME PER 28-30 DAYS
     Route: 030
     Dates: start: 202312
  2. SYNAGIS [Suspect]
     Active Substance: PALIVIZUMAB
     Indication: Chronic respiratory disease

REACTIONS (3)
  - Viral infection [Unknown]
  - Intentional dose omission [Unknown]
  - Mood altered [Unknown]

NARRATIVE: CASE EVENT DATE: 20240101
